FAERS Safety Report 4303551-3 (Version None)
Quarter: 2004Q1

REPORT INFORMATION
  Report Type: 
  Country: None (occurrence: None)
  Receive Date: 20040223
  Receipt Date: 20040210
  Transmission Date: 20041129
  Serious: Yes (Other)
  Sender: FDA-Public Use
  Company Number: 2004008969

PATIENT
  Age: 64 Year
  Sex: Female
  Weight: 92 kg

DRUGS (7)
  1. ZOLOFT [Suspect]
     Indication: ILL-DEFINED DISORDER
     Dosage: 25 MG (DAILY), ORAL
     Route: 048
     Dates: end: 20040210
  2. WARFARIN SODIUM [Concomitant]
  3. BACTRIM [Concomitant]
  4. ATROVENT [Concomitant]
  5. ALBUTEROL [Concomitant]
  6. CLARITIN [Concomitant]
  7. RENAGEL RENAL VITAMIN (SEVELAMER HYDROCHLORIDE) [Concomitant]

REACTIONS (3)
  - CONFUSIONAL STATE [None]
  - DEMENTIA [None]
  - HALLUCINATION [None]
